FAERS Safety Report 12391682 (Version 1)
Quarter: 2016Q2

REPORT INFORMATION
  Report Type: Spontaneous
  Country: AT (occurrence: AT)
  Receive Date: 20160522
  Receipt Date: 20160522
  Transmission Date: 20160815
  Serious: Yes (Other)
  Sender: FDA-Public Use
  Company Number: PHHY2016AT066276

PATIENT
  Age: 63 Year
  Sex: Male

DRUGS (1)
  1. VOTRIENT [Suspect]
     Active Substance: PAZOPANIB HYDROCHLORIDE
     Indication: RENAL CELL CARCINOMA
     Dosage: 2 DF, QD
     Route: 065
     Dates: start: 201010, end: 201203

REACTIONS (6)
  - Dermatitis [Unknown]
  - Hypothyroidism [Unknown]
  - Dysgeusia [Unknown]
  - Aspartate aminotransferase increased [Unknown]
  - Hypertension [Unknown]
  - Alanine aminotransferase increased [Unknown]

NARRATIVE: CASE EVENT DATE: 201203
